FAERS Safety Report 6638113-6 (Version None)
Quarter: 2010Q1

REPORT INFORMATION
  Report Type: 
  Country: None (occurrence: None)
  Receive Date: 20100312
  Receipt Date: 20100308
  Transmission Date: 20100710
  Serious: Yes (Other)
  Sender: FDA-Public Use
  Company Number: 2010SP014467

PATIENT
  Sex: Female

DRUGS (1)
  1. TEMODAL [Suspect]
     Indication: GLIOMA

REACTIONS (2)
  - FEBRILE NEUTROPENIA [None]
  - PANCYTOPENIA [None]
